FAERS Safety Report 11520144 (Version 1)
Quarter: 2015Q3

REPORT INFORMATION
  Report Type: Spontaneous
  Country: US (occurrence: US)
  Receive Date: 20150918
  Receipt Date: 20150918
  Transmission Date: 20151125
  Serious: No
  Sender: FDA-Public Use
  Company Number: US-RB-071711-15

PATIENT

DRUGS (2)
  1. DILTIAZAM [Concomitant]
     Indication: PRODUCT USED FOR UNKNOWN INDICATION
     Dosage: . PATIENT TOOK THE DRUG ON AN UNKNOWN DATE AT AN UNSPECIFIED DOSING,FREQUENCY UNK
     Route: 065
  2. MUCINEX [Suspect]
     Active Substance: GUAIFENESIN
     Indication: PRODUCT USED FOR UNKNOWN INDICATION
     Dosage: . DOSING UNKNOWN,FREQUENCY UNK
     Route: 065
     Dates: start: 20141216

REACTIONS (2)
  - Dizziness [Unknown]
  - Contraindication to medical treatment [Unknown]
